FAERS Safety Report 9913933 (Version 2)
Quarter: 2014Q2

REPORT INFORMATION
  Report Type: Spontaneous
  Country: US (occurrence: US)
  Receive Date: 20140220
  Receipt Date: 20140611
  Transmission Date: 20141212
  Serious: Yes (Other)
  Sender: FDA-Public Use
  Company Number: US-PFIZER INC-2014041929

PATIENT
  Age: 81 Year
  Sex: Female

DRUGS (2)
  1. REVATIO [Suspect]
     Dosage: 20 MG, 3X/DAY
  2. LETAIRIS [Suspect]
     Indication: PULMONARY ARTERIAL HYPERTENSION
     Dosage: 10 MG, 1X/DAY
     Dates: start: 20111122

REACTIONS (1)
  - Deafness unilateral [Not Recovered/Not Resolved]
